FAERS Safety Report 15041486 (Version 2)
Quarter: 2018Q2

REPORT INFORMATION
  Report Type: Report from Study
  Country: US (occurrence: US)
  Receive Date: 20180621
  Receipt Date: 20180625
  Transmission Date: 20180711
  Serious: No
  Sender: FDA-Public Use
  Company Number: PHEH2018US023782

PATIENT
  Sex: Female

DRUGS (1)
  1. COSENTYX [Suspect]
     Active Substance: SECUKINUMAB
     Indication: PSORIATIC ARTHROPATHY
     Dosage: 4 LOADING DOSES
     Route: 065

REACTIONS (3)
  - Psoriatic arthropathy [Unknown]
  - Dysstasia [Unknown]
  - Arthralgia [Unknown]
